FAERS Safety Report 4641957-3 (Version None)
Quarter: 2005Q2

REPORT INFORMATION
  Report Type: 
  Country: None (occurrence: None)
  Receive Date: 20050421
  Receipt Date: 20050408
  Transmission Date: 20051028
  Serious: Yes (Death, Other)
  Sender: FDA-Public Use
  Company Number: 2005047721

PATIENT
  Age: 59 Year
  Sex: Female
  Weight: 79.3795 kg

DRUGS (5)
  1. CELEBREX [Suspect]
     Indication: ARTHRITIS
     Dosage: ORAL
     Route: 048
  2. PENTOXIFYLLINE [Concomitant]
  3. FLUOXETINE HCL [Concomitant]
  4. POTASSIUM ACETATE [Concomitant]
  5. ANTIHYPERTENSIVES (ANTIHYPERTENSIVES) [Concomitant]

REACTIONS (6)
  - ARRHYTHMIA [None]
  - ARTHRALGIA [None]
  - DISEASE RECURRENCE [None]
  - RESPIRATORY ARREST [None]
  - SNORING [None]
  - SUDDEN DEATH [None]
